FAERS Safety Report 11217089 (Version 2)
Quarter: 2015Q2

REPORT INFORMATION
  Report Type: Spontaneous
  Country: US (occurrence: US)
  Receive Date: 20150624
  Receipt Date: 20150630
  Transmission Date: 20150821
  Serious: No
  Sender: FDA-Public Use
  Company Number: US-009507513-1506USA010722

PATIENT
  Age: 22 Year
  Sex: Female
  Weight: 52.15 kg

DRUGS (2)
  1. NEXPLANON [Suspect]
     Active Substance: ETONOGESTREL
     Indication: CONTRACEPTION
     Dosage: UNK
     Route: 059
     Dates: start: 20140820, end: 20150225
  2. NEXPLANON [Suspect]
     Active Substance: ETONOGESTREL
     Dosage: FREQUENCY: 3 YEARS
     Route: 059
     Dates: start: 20150225

REACTIONS (8)
  - Somnolence [Unknown]
  - Dizziness [Unknown]
  - Vomiting [Unknown]
  - Adverse event [Unknown]
  - Pregnancy with implant contraceptive [Unknown]
  - Nausea [Unknown]
  - Implant site bruising [Unknown]
  - Device breakage [Recovered/Resolved]

NARRATIVE: CASE EVENT DATE: 201505
